FAERS Safety Report 4606193-5 (Version None)
Quarter: 2005Q1

REPORT INFORMATION
  Report Type: 
  Country: None (occurrence: None)
  Receive Date: 20050311
  Receipt Date: 20050224
  Transmission Date: 20050727
  Serious: Yes (Other)
  Sender: FDA-Public Use
  Company Number: GRWYE462728FEB05

PATIENT
  Sex: Female

DRUGS (1)
  1. ENBREL [Suspect]
     Indication: RHEUMATOID ARTHRITIS
     Route: 058

REACTIONS (6)
  - CONJUNCTIVITIS [None]
  - HEADACHE [None]
  - HYPOAESTHESIA [None]
  - LARYNGEAL OEDEMA [None]
  - PARAESTHESIA [None]
  - TACHYCARDIA [None]
